FAERS Safety Report 5124550-8 (Version None)
Quarter: 2006Q3

REPORT INFORMATION
  Report Type: 
  Country: None (occurrence: None)
  Receive Date: 20060821
  Receipt Date: 20060720
  Transmission Date: 20061208
  Serious: No
  Sender: FDA-Public Use
  Company Number: TPA2006A01007

PATIENT
  Age: 48 Year
  Sex: Female
  Weight: 73.9363 kg

DRUGS (16)
  1. ROZEREM [Suspect]
     Indication: INSOMNIA
     Dosage: 8 MG, HS, PER ORAL
     Route: 048
     Dates: start: 20060614, end: 20060621
  2. NEURONTIN [Concomitant]
  3. DEPAKOTE [Concomitant]
  4. DILTIAZEM (DILTIAZEM) (60 MILLIGRAM) [Concomitant]
  5. NEXIUM [Concomitant]
  6. BUSPAR (BUSPIRONE HYDROCHLORIDE) (15 MILLIGRAM) [Concomitant]
  7. EFFEXOR XR (VENLAFAXINE HYDROCHLORIDE) (225 MILLIGRAM) [Concomitant]
  8. CELEXA (CITALOPRAM HYDROBROMIDE) (40 MILLIGRAM) [Concomitant]
  9. PRINIVIL (LISINOPRIL) (5 MILLIGRAM) [Concomitant]
  10. SENNA (SENNA ALEXANDRIA) [Concomitant]
  11. MIRALAX [Concomitant]
  12. VYTORIN (SIMVASTATIN, EZETIMIBE) [Concomitant]
  13. VITAMIN E [Concomitant]
  14. CENTRUM (VITAMINS NOS, MINERALS NOS) [Concomitant]
  15. ASPIRIN [Concomitant]
  16. NOVOLOG [Concomitant]

REACTIONS (4)
  - ABNORMAL DREAMS [None]
  - INITIAL INSOMNIA [None]
  - IRRITABILITY [None]
  - RESTLESSNESS [None]
